FAERS Safety Report 22984506 (Version 3)
Quarter: 2023Q4

REPORT INFORMATION
  Report Type: Spontaneous
  Country: ES (occurrence: ES)
  Receive Date: 20230926
  Receipt Date: 20231013
  Transmission Date: 20240109
  Serious: Yes (Hospitalization, Other)
  Sender: FDA-Public Use
  Company Number: ES-ABBVIE-5395408

PATIENT
  Age: 41 Year
  Sex: Male

DRUGS (1)
  1. ADALIMUMAB [Suspect]
     Active Substance: ADALIMUMAB
     Indication: Axial spondyloarthritis
     Dosage: 40 MILLIGRAM, Q2W
     Route: 065
     Dates: start: 2021, end: 202108

REACTIONS (3)
  - Haemophagocytic lymphohistiocytosis [Unknown]
  - Visceral leishmaniasis [Recovered/Resolved]
  - Axial spondyloarthritis [Recovering/Resolving]

NARRATIVE: CASE EVENT DATE: 20210101
